FAERS Safety Report 12095498 (Version 3)
Quarter: 2016Q1

REPORT INFORMATION
  Report Type: Spontaneous
  Country: GB (occurrence: GB)
  Receive Date: 20160219
  Receipt Date: 20160315
  Transmission Date: 20160526
  Serious: Yes (Other)
  Sender: FDA-Public Use
  Company Number: GB-ABBVIE-16P-167-1564993-00

PATIENT
  Age: 67 Year
  Sex: Female

DRUGS (2)
  1. EPILIM EC [Suspect]
     Active Substance: VALPROATE SODIUM
     Indication: TEMPORAL LOBE EPILEPSY
     Route: 048
  2. FRISIUM [Suspect]
     Active Substance: CLOBAZAM
     Indication: PRODUCT USED FOR UNKNOWN INDICATION
     Route: 065

REACTIONS (8)
  - Somnambulism [Not Recovered/Not Resolved]
  - Fall [Unknown]
  - Eye contusion [Unknown]
  - Epilepsy [Unknown]
  - Abnormal sleep-related event [Not Recovered/Not Resolved]
  - Seizure [Unknown]
  - Lip swelling [Unknown]
  - Amnesia [Not Recovered/Not Resolved]
